FAERS Safety Report 24766172 (Version 1)
Quarter: 2024Q4

REPORT INFORMATION
  Report Type: Report from Study
  Country: CO (occurrence: CO)
  Receive Date: 20241223
  Receipt Date: 20241223
  Transmission Date: 20250114
  Serious: Yes (Death, Other)
  Sender: BAYER HEALTHCARE PHARMACEUTICALS INC.
  Company Number: CO-BAYER-2024A130991

PATIENT
  Age: 82 Year
  Sex: Male

DRUGS (4)
  1. ADEMPAS [Suspect]
     Active Substance: RIOCIGUAT
     Indication: Pulmonary hypertension
     Dosage: 1.0 MG, Q8HR
     Dates: start: 20240901
  2. ADEMPAS [Suspect]
     Active Substance: RIOCIGUAT
     Indication: Pulmonary hypertension
     Dosage: 2.5 MG, Q8HR
     Route: 048
     Dates: start: 20241016
  3. ACYCLOVIR [Concomitant]
     Active Substance: ACYCLOVIR
     Dosage: UNK
     Dates: start: 20241005, end: 20241012
  4. PREGABALIN [Concomitant]
     Active Substance: PREGABALIN
     Dosage: UNK

REACTIONS (19)
  - Death [Fatal]
  - Dependence on oxygen therapy [None]
  - Inflammation [None]
  - Gait inability [None]
  - Bedridden [None]
  - Fatigue [Not Recovered/Not Resolved]
  - Blister rupture [None]
  - Peripheral swelling [Recovering/Resolving]
  - Fluid retention [None]
  - Blood pressure abnormal [None]
  - Blister [Recovered/Resolved with Sequelae]
  - Rash [Recovered/Resolved with Sequelae]
  - Pruritus [Recovered/Resolved with Sequelae]
  - Suffocation feeling [Not Recovered/Not Resolved]
  - Dry skin [None]
  - Palpitations [Not Recovered/Not Resolved]
  - Medication error [None]
  - Therapy cessation [None]
  - Tremor [Not Recovered/Not Resolved]

NARRATIVE: CASE EVENT DATE: 20240905
